FAERS Safety Report 22610040 (Version 2)
Quarter: 2023Q2

REPORT INFORMATION
  Report Type: Spontaneous
  Country: FR (occurrence: FR)
  Receive Date: 20230616
  Receipt Date: 20230622
  Transmission Date: 20230722
  Serious: Yes (Life-Threatening, Other)
  Sender: FDA-Public Use
  Company Number: None

PATIENT
  Age: 65 Year
  Sex: Male
  Weight: 52 kg

DRUGS (7)
  1. ARIPIPRAZOLE [Interacting]
     Active Substance: ARIPIPRAZOLE
     Indication: Psychotic disorder
     Dosage: 10 MG, QD
     Route: 048
     Dates: start: 20230512, end: 20230517
  2. LOXAPINE SUCCINATE [Interacting]
     Active Substance: LOXAPINE SUCCINATE
     Indication: Psychotic disorder
     Dosage: UNK
     Route: 048
     Dates: start: 20230505, end: 20230515
  3. DIAZEPAM [Interacting]
     Active Substance: DIAZEPAM
     Indication: Psychotic disorder
     Dosage: UNK
     Route: 048
     Dates: start: 20230505, end: 20230515
  4. HALOPERIDOL [Interacting]
     Active Substance: HALOPERIDOL
     Indication: Psychotic disorder
     Dosage: 20 DROP, QD
     Route: 048
     Dates: start: 20230505, end: 20230510
  5. HALOPERIDOL [Interacting]
     Active Substance: HALOPERIDOL
     Dosage: 40 GTT, QD
     Route: 048
     Dates: start: 20230511, end: 20230512
  6. TROPATEPINE HYDROCHLORIDE [Interacting]
     Active Substance: TROPATEPINE HYDROCHLORIDE
     Indication: Psychotic disorder
     Dosage: 10 MG, QD
     Route: 048
     Dates: start: 20230509, end: 20230517
  7. LORAZEPAM [Interacting]
     Active Substance: LORAZEPAM
     Indication: Psychotic disorder
     Dosage: 5 MG, QD
     Route: 048
     Dates: start: 20230515, end: 20230517

REACTIONS (4)
  - Coma [Recovered/Resolved]
  - Urinary retention [Recovered/Resolved]
  - Drug interaction [Unknown]
  - Product use in unapproved indication [Unknown]

NARRATIVE: CASE EVENT DATE: 20230517
